FAERS Safety Report 8603814-7 (Version None)
Quarter: 2012Q3

REPORT INFORMATION
  Report Type: 
  Country: None (occurrence: None)
  Receive Date: 20120818
  Receipt Date: 20120808
  Transmission Date: 20120928
  Serious: Yes (Hospitalization, Other)
  Sender: FDA-Public Use
  Company Number: US-BAXTER-2012BAX003872

PATIENT
  Sex: Male
  Weight: 60 kg

DRUGS (2)
  1. ADVATE [Suspect]
     Dates: start: 19990401
  2. RECOMBINATE [Suspect]
     Dates: start: 19990401

REACTIONS (4)
  - HAEMARTHROSIS [None]
  - POST PROCEDURAL COMPLICATION [None]
  - HUMERUS FRACTURE [None]
  - GYNAECOMASTIA [None]
